FAERS Safety Report 7018108-3 (Version None)
Quarter: 2010Q3

REPORT INFORMATION
  Report Type: 
  Country: None (occurrence: None)
  Receive Date: 20100922
  Receipt Date: 20100907
  Transmission Date: 20110219
  Serious: Yes (Death, Other)
  Sender: FDA-Public Use
  Company Number: 011064

PATIENT

DRUGS (4)
  1. BUSULFEX [Suspect]
     Indication: BONE MARROW CONDITIONING REGIMEN
     Dosage: INTRAVENOUS
     Route: 042
  2. FLUDARABINE PHOSPHATE [Concomitant]
  3. AMSACRINE (AMSACRINE) [Concomitant]
  4. CYTARABINE [Concomitant]

REACTIONS (4)
  - CEREBRAL HAEMORRHAGE [None]
  - CHLOROMA [None]
  - LEUKAEMIA RECURRENT [None]
  - THROMBOCYTOPENIA [None]
